FAERS Safety Report 7867078-4 (Version None)
Quarter: 2011Q4

REPORT INFORMATION
  Report Type: 
  Country: None (occurrence: None)
  Receive Date: 20111028
  Receipt Date: 20111018
  Transmission Date: 20120403
  Serious: Yes (Hospitalization)
  Sender: FDA-Public Use
  Company Number: US-BAYER-2011-000572

PATIENT
  Age: 34 Year
  Sex: Female
  Weight: 95.692 kg

DRUGS (7)
  1. YAZ [Suspect]
     Indication: CONTRACEPTION
     Dosage: UNK
     Route: 048
     Dates: start: 20061101, end: 20061201
  2. CHROMAGEN [ASCORBIC ACID,CYANOCOBALAMIN,FERROUS FUMARATE,FOLIC ACI [Concomitant]
     Route: 048
  3. COUMADIN [Concomitant]
     Indication: DEEP VEIN THROMBOSIS
     Dosage: UNK
     Route: 048
     Dates: start: 20061209
  4. OVCON-35 [Concomitant]
  5. PREMARIN [Concomitant]
     Indication: VAGINAL HAEMORRHAGE
  6. PROMETRIUM [Concomitant]
  7. LOVENOX [Concomitant]
     Dosage: 50 MG, UNK
     Route: 058
     Dates: start: 20061201

REACTIONS (3)
  - DEEP VEIN THROMBOSIS [None]
  - INJURY [None]
  - PAIN [None]
